FAERS Safety Report 9460054 (Version 1)
Quarter: 2013Q3

REPORT INFORMATION
  Report Type: Spontaneous
  Country: BR (occurrence: BR)
  Receive Date: 20130815
  Receipt Date: 20130815
  Transmission Date: 20140515
  Serious: Yes (Hospitalization)
  Sender: FDA-Public Use
  Company Number: BR-ASTRAZENECA-2013SE62524

PATIENT
  Age: 23918 Day
  Sex: Female
  Weight: 61 kg

DRUGS (3)
  1. CRESTOR [Suspect]
     Indication: BLOOD CHOLESTEROL INCREASED
     Route: 048
     Dates: start: 2009
  2. GLIFAGE XR [Concomitant]
     Indication: DIABETES MELLITUS
  3. TRAYENTA [Concomitant]
     Indication: DIABETES MELLITUS

REACTIONS (2)
  - Benign bone neoplasm [Recovering/Resolving]
  - Trigger finger [Recovering/Resolving]
